FAERS Safety Report 14147810 (Version 1)
Quarter: 2017Q4

REPORT INFORMATION
  Report Type: Spontaneous
  Country: US (occurrence: US)
  Receive Date: 20171031
  Receipt Date: 20171031
  Transmission Date: 20180321
  Serious: No
  Sender: FDA-Public Use
  Company Number: US-ROMARKLABS-2017-US-000063

PATIENT
  Sex: 0

DRUGS (1)
  1. ALINIA [Suspect]
     Active Substance: NITAZOXANIDE
     Indication: PRODUCT USED FOR UNKNOWN INDICATION
     Dosage: 2 DOSES TOTAL
     Route: 048
     Dates: start: 201705, end: 201705

REACTIONS (1)
  - Rash [Unknown]

NARRATIVE: CASE EVENT DATE: 201705
